FAERS Safety Report 7479040-4 (Version None)
Quarter: 2011Q2

REPORT INFORMATION
  Report Type: 
  Country: None (occurrence: None)
  Receive Date: 20110513
  Receipt Date: 20110505
  Transmission Date: 20111010
  Serious: Yes (Other)
  Sender: FDA-Public Use
  Company Number: PHHY2011NL23528

PATIENT
  Age: 11 Year
  Sex: Male
  Weight: 33 kg

DRUGS (3)
  1. DEXTROAMPHETAMINE [Suspect]
     Indication: ATTENTION DEFICIT/HYPERACTIVITY DISORDER
     Dosage: 2.5 MG, BID
  2. DEXAMETHASONE [Suspect]
     Indication: ATTENTION DEFICIT/HYPERACTIVITY DISORDER
  3. DEXTROAMPHETAMINE [Suspect]
     Dosage: 5 MG, BID

REACTIONS (7)
  - FATIGUE [None]
  - RESTLESSNESS [None]
  - DRUG DISPENSING ERROR [None]
  - HYPOTENSION [None]
  - INCREASED APPETITE [None]
  - WEIGHT INCREASED [None]
  - CUSHING'S SYNDROME [None]
